FAERS Safety Report 11102479 (Version 1)
Quarter: 2015Q2

REPORT INFORMATION
  Report Type: Spontaneous
  Country: US (occurrence: None)
  Receive Date: 20150508
  Receipt Date: 20150508
  Transmission Date: 20150821
  Serious: No
  Sender: FDA-Public Use
  Company Number: None

PATIENT
  Age: 41 Year
  Sex: Female

DRUGS (1)
  1. XOLAIR [Suspect]
     Active Substance: OMALIZUMAB
     Indication: URTICARIA CHRONIC
     Dosage: 300 MG, Q4 WEEK, SUBCUTANEOUSLY
     Route: 058
     Dates: start: 20131212, end: 20150204

REACTIONS (2)
  - Muscle spasms [None]
  - Arthropathy [None]

NARRATIVE: CASE EVENT DATE: 20140206
